FAERS Safety Report 10680425 (Version 1)
Quarter: 2014Q4

REPORT INFORMATION
  Report Type: Spontaneous
  Country: US (occurrence: US)
  Receive Date: 20141229
  Receipt Date: 20141229
  Transmission Date: 20150529
  Serious: No
  Sender: FDA-Public Use
  Company Number: US-SA-2014SA011115

PATIENT
  Sex: Female

DRUGS (12)
  1. LIBRIUM [Concomitant]
     Active Substance: CHLORDIAZEPOXIDE HYDROCHLORIDE
  2. VITAMIN D3 [Concomitant]
     Active Substance: CHOLECALCIFEROL
  3. PLAVIX [Suspect]
     Active Substance: CLOPIDOGREL BISULFATE
     Indication: CEREBROVASCULAR ACCIDENT
     Route: 048
  4. ASPIRIN. [Concomitant]
     Active Substance: ASPIRIN
  5. CLONIDINE. [Concomitant]
     Active Substance: CLONIDINE
  6. OMEPRAZOLE. [Concomitant]
     Active Substance: OMEPRAZOLE
  7. CRESTOR [Concomitant]
     Active Substance: ROSUVASTATIN CALCIUM
  8. SPIRONOLACTONE. [Concomitant]
     Active Substance: SPIRONOLACTONE
  9. LUTEIN [Concomitant]
     Active Substance: LUTEIN
  10. KETOCONAZOLE. [Concomitant]
     Active Substance: KETOCONAZOLE
  11. LOPRESSOR [Concomitant]
     Active Substance: METOPROLOL TARTRATE
  12. COENZYME Q10 [Concomitant]
     Active Substance: UBIDECARENONE

REACTIONS (2)
  - Confusional state [Unknown]
  - Extra dose administered [Unknown]
